FAERS Safety Report 9895957 (Version 1)
Quarter: 2014Q1

REPORT INFORMATION
  Report Type: Spontaneous
  Country: US (occurrence: US)
  Receive Date: 20140213
  Receipt Date: 20140213
  Transmission Date: 20141002
  Serious: Yes (Hospitalization)
  Sender: FDA-Public Use
  Company Number: US-BRISTOL-MYERS SQUIBB COMPANY-17404526

PATIENT
  Sex: Female

DRUGS (3)
  1. ORENCIA [Suspect]
     Route: 042
  2. REMICADE [Suspect]
  3. ACTEMRA [Suspect]

REACTIONS (2)
  - Respiratory tract infection [Unknown]
  - Pneumonia [Unknown]
